FAERS Safety Report 20944068 (Version 1)
Quarter: 2022Q2

REPORT INFORMATION
  Report Type: Spontaneous
  Country: US (occurrence: US)
  Receive Date: 20220610
  Receipt Date: 20220610
  Transmission Date: 20220721
  Serious: No
  Sender: FDA-Public Use
  Company Number: US-Global Blood Therapeutics Inc-US-GBT-22-02531

PATIENT
  Sex: Male

DRUGS (6)
  1. OXBRYTA [Suspect]
     Active Substance: VOXELOTOR
     Indication: Sickle cell disease
     Route: 048
     Dates: start: 20220215
  2. OXBRYTA [Suspect]
     Active Substance: VOXELOTOR
     Indication: Chronic kidney disease
  3. OXBRYTA [Suspect]
     Active Substance: VOXELOTOR
     Indication: Hepatitis viral
  4. OXBRYTA [Suspect]
     Active Substance: VOXELOTOR
     Indication: Anaemia
  5. OXBRYTA [Suspect]
     Active Substance: VOXELOTOR
     Indication: Hepatitis viral
  6. ENTECAVIR [Concomitant]
     Active Substance: ENTECAVIR
     Indication: Product used for unknown indication
     Dosage: NOT PROVIDED

REACTIONS (1)
  - Diarrhoea [Unknown]

NARRATIVE: CASE EVENT DATE: 20220101
